FAERS Safety Report 6284499-4 (Version None)
Quarter: 2009Q3

REPORT INFORMATION
  Report Type: 
  Country: None (occurrence: None)
  Receive Date: 20090727
  Receipt Date: 20090721
  Transmission Date: 20100115
  Serious: Yes (Hospitalization)
  Sender: FDA-Public Use
  Company Number: JP-BAYER-200912526BYL

PATIENT
  Age: 61 Year
  Sex: Male

DRUGS (5)
  1. NEXAVAR [Suspect]
     Indication: HEPATIC CANCER STAGE IV
     Dosage: UNIT DOSE: 200 MG
     Route: 048
     Dates: start: 20090623, end: 20090706
  2. OXYCONTIN [Concomitant]
     Indication: PAIN MANAGEMENT
     Route: 048
     Dates: end: 20090707
  3. NORVASC [Concomitant]
     Route: 048
  4. MAGMITT [Concomitant]
     Indication: PROPHYLAXIS
     Dosage: AS USED: 330 MG
     Route: 048
  5. PURSENNID [Concomitant]
     Indication: PROPHYLAXIS
     Route: 048

REACTIONS (1)
  - HEPATIC FUNCTION ABNORMAL [None]
